FAERS Safety Report 26114704 (Version 1)
Quarter: 2025Q4

REPORT INFORMATION
  Report Type: Spontaneous
  Country: EU (occurrence: EU)
  Receive Date: 20251202
  Receipt Date: 20251202
  Transmission Date: 20260118
  Serious: Yes (Other)
  Sender: AMGEN
  Company Number: EU-ELI_LILLY_AND_COMPANY-IT202511015686

PATIENT
  Age: 66 Year
  Sex: Female

DRUGS (10)
  1. DENOSUMAB [Suspect]
     Active Substance: DENOSUMAB
     Indication: Product used for unknown indication
     Dosage: UNK UNK, UNKNOWN
     Route: 065
     Dates: start: 20220726, end: 202402
  2. ABEMACICLIB [Suspect]
     Active Substance: ABEMACICLIB
     Indication: Gastrointestinal toxicity
     Dosage: UNK
     Route: 065
     Dates: start: 202205, end: 20240820
  3. ABEMACICLIB [Suspect]
     Active Substance: ABEMACICLIB
     Indication: Nephropathy toxic
  4. ABEMACICLIB [Suspect]
     Active Substance: ABEMACICLIB
     Indication: Breast cancer metastatic
  5. LETROZOLE [Concomitant]
     Active Substance: LETROZOLE
     Indication: Product used for unknown indication
     Dosage: UNK
     Dates: start: 202205, end: 20240820
  6. VINORELBINE [Concomitant]
     Active Substance: VINORELBINE TARTRATE
     Indication: Chemotherapy
     Dosage: UNK
     Dates: start: 20250114
  7. STX 478 [Concomitant]
     Indication: Chemotherapy
     Dosage: UNK
     Dates: start: 20250527, end: 20250728
  8. STX 478 [Concomitant]
     Dosage: UNK
  9. EPIRUBICIN [Concomitant]
     Active Substance: EPIRUBICIN
     Indication: Product used for unknown indication
     Dosage: UNK, WEEKLY (1/W)
     Dates: start: 20250729
  10. PACLITAXEL [Concomitant]
     Active Substance: PACLITAXEL
     Indication: Product used for unknown indication
     Dosage: UNK

REACTIONS (17)
  - Carbohydrate antigen 15-3 increased [Unknown]
  - Osteonecrosis of jaw [Unknown]
  - Mitral valve incompetence [Unknown]
  - Aortic arteriosclerosis [Unknown]
  - Malignant neoplasm progression [Unknown]
  - Xerophthalmia [Unknown]
  - Carcinoembryonic antigen increased [Unknown]
  - Mucosal inflammation [Unknown]
  - AST/ALT ratio increased [Unknown]
  - Blood alkaline phosphatase increased [Unknown]
  - Blood creatine phosphokinase increased [Unknown]
  - Gamma-glutamyltransferase increased [Unknown]
  - Urine albumin/creatinine ratio increased [Unknown]
  - Urine protein/creatinine ratio increased [Unknown]
  - Blood creatinine increased [Unknown]
  - Haemoglobin decreased [Unknown]
  - Dry mouth [Unknown]

NARRATIVE: CASE EVENT DATE: 20240801
